FAERS Safety Report 5773653-3 (Version None)
Quarter: 2008Q2

REPORT INFORMATION
  Report Type: 
  Country: None (occurrence: None)
  Receive Date: 20080616
  Receipt Date: 20080610
  Transmission Date: 20081010
  Serious: No
  Sender: FDA-Public Use
  Company Number: US-BAYER-200820746NA

PATIENT
  Age: 34 Year
  Sex: Female
  Weight: 51 kg

DRUGS (4)
  1. MIRENA [Suspect]
     Indication: CONTRACEPTION
     Route: 015
     Dates: start: 20070101
  2. LIBRAX [Concomitant]
     Indication: IRRITABLE BOWEL SYNDROME
     Route: 048
     Dates: start: 20070830
  3. XANAX [Concomitant]
     Indication: ANXIETY
     Route: 048
  4. CELEXA [Concomitant]
     Route: 048
     Dates: start: 20070905

REACTIONS (2)
  - TREMOR [None]
  - WEIGHT DECREASED [None]
